FAERS Safety Report 4628145-1 (Version None)
Quarter: 2005Q2

REPORT INFORMATION
  Report Type: 
  Country: None (occurrence: None)
  Receive Date: 20050401
  Receipt Date: 20050218
  Transmission Date: 20051028
  Serious: Yes (Hospitalization, Other)
  Sender: FDA-Public Use
  Company Number: 53871

PATIENT
  Age: 71 Year
  Sex: Male

DRUGS (14)
  1. IBUPROFEN [Suspect]
     Indication: PAIN
     Dosage: 2 TABLETS, TWICE DAILY
     Route: 048
     Dates: start: 20050201, end: 20050201
  2. GLIPIZIDE [Concomitant]
  3. LASIX [Concomitant]
  4. LIPITOR [Concomitant]
  5. LISINOPRIL [Concomitant]
  6. METOPROLOL TARTRATE [Concomitant]
  7. PLAVIX [Concomitant]
  8. K-TAB [Concomitant]
  9. LEVOTHYROXINE [Concomitant]
  10. PAXIL [Concomitant]
  11. CLINDAMYCIN [Concomitant]
  12. FLORESAMITE [Concomitant]
  13. ZINC [Concomitant]
  14. MULTI-VITAMIN [Concomitant]

REACTIONS (2)
  - DIALYSIS [None]
  - RENAL FAILURE [None]
